FAERS Safety Report 8426027 (Version 2)
Quarter: 2013Q1

REPORT INFORMATION
  Report Type: Spontaneous
  Country: US (occurrence: US)
  Receive Date: 20120224
  Receipt Date: 20130228
  Transmission Date: 20140127
  Serious: No
  Sender: FDA-Public Use
  Company Number: US-MYLANLABS-2011S1018666

PATIENT
  Sex: Female

DRUGS (1)
  1. ATENOLOL TABLETS, USP [Suspect]
     Indication: VENTRICULAR EXTRASYSTOLES
     Dates: end: 20110915

REACTIONS (18)
  - Lupus-like syndrome [Recovered/Resolved]
  - Arrhythmia [Recovered/Resolved]
  - Heart rate irregular [Recovered/Resolved]
  - Cardiac flutter [Recovered/Resolved]
  - Chest pain [Recovered/Resolved]
  - Dyspnoea [Recovered/Resolved]
  - Tachycardia [Recovered/Resolved]
  - Fatigue [Recovered/Resolved]
  - Dizziness [Recovered/Resolved]
  - Asthenia [Recovered/Resolved]
  - Pruritus [Recovered/Resolved]
  - Nausea [Recovered/Resolved]
  - Tinnitus [Recovered/Resolved]
  - Ear pain [Recovered/Resolved]
  - Balance disorder [Recovered/Resolved]
  - Bradyphrenia [Recovered/Resolved]
  - Cough [Recovered/Resolved]
  - Contusion [Recovered/Resolved]
